FAERS Safety Report 9790552 (Version 3)
Quarter: 2014Q1

REPORT INFORMATION
  Report Type: Spontaneous
  Country: US (occurrence: US)
  Receive Date: 20131231
  Receipt Date: 20140210
  Transmission Date: 20141002
  Serious: Yes (Hospitalization)
  Sender: FDA-Public Use
  Company Number: US-PFIZER INC-2013370811

PATIENT
  Age: 56 Year
  Sex: Female

DRUGS (7)
  1. TOVIAZ [Suspect]
     Dosage: 8 MG, 1X/DAY
     Dates: start: 2013
  2. DIFLUCAN [Concomitant]
     Dosage: 100 MG, AS NEEDED
  3. FUROSEMIDE [Concomitant]
     Dosage: 20 MG, UNK
  4. LASIX [Concomitant]
     Dosage: 20 MG, UNK
  5. NIFEDIPINE [Concomitant]
     Dosage: 10 MG, UNK
  6. PREDNISOLONE [Concomitant]
     Dosage: 5 MG, UNK
  7. NYSTATIN [Concomitant]
     Dosage: UNK AS NEEDED

REACTIONS (1)
  - Arthritis infective [Unknown]
